FAERS Safety Report 19892638 (Version 1)
Quarter: 2021Q3

REPORT INFORMATION
  Report Type: Spontaneous
  Country: DE (occurrence: DE)
  Receive Date: 20210928
  Receipt Date: 20210928
  Transmission Date: 20211014
  Serious: Yes (Hospitalization, Congenital Anomaly, Other)
  Sender: FDA-Public Use
  Company Number: DE-ALLERGAN-2133149US

PATIENT
  Sex: Female
  Weight: 3.54 kg

DRUGS (3)
  1. XEPLION [Suspect]
     Active Substance: PALIPERIDONE PALMITATE
     Indication: SCHIZOPHRENIA
     Dosage: 100 MG, Q2WEEKS
     Route: 065
     Dates: end: 20200603
  2. ESCITALOPRAM OXALATE ? BP [Suspect]
     Active Substance: ESCITALOPRAM OXALATE
     Indication: EXPOSURE DURING PREGNANCY
     Dosage: 15 MG, QD
     Route: 064
  3. XEPLION [Suspect]
     Active Substance: PALIPERIDONE PALMITATE
     Dosage: 75 MG, Q2WEEKS
     Route: 065
     Dates: start: 20190819

REACTIONS (14)
  - Coordination abnormal [Unknown]
  - Dysmorphism [Not Recovered/Not Resolved]
  - Drug withdrawal syndrome neonatal [Recovered/Resolved]
  - Congenital central nervous system anomaly [Not Recovered/Not Resolved]
  - Hypotonia neonatal [Recovered/Resolved]
  - Selective eating disorder [Recovered/Resolved]
  - Oxygen saturation decreased [Recovered/Resolved]
  - Nystagmus [Unknown]
  - Cerebral atrophy [Not Recovered/Not Resolved]
  - Myoclonus [Recovered/Resolved]
  - Temperature regulation disorder [Recovered/Resolved]
  - Macrocephaly [Not Recovered/Not Resolved]
  - Bradycardia neonatal [Recovered/Resolved]
  - Pregnancy [Unknown]

NARRATIVE: CASE EVENT DATE: 20200603
